FAERS Safety Report 7484396-2 (Version None)
Quarter: 2011Q2

REPORT INFORMATION
  Report Type: 
  Country: None (occurrence: None)
  Receive Date: 20110517
  Receipt Date: 20110509
  Transmission Date: 20111010
  Serious: Yes (Hospitalization)
  Sender: FDA-Public Use
  Company Number: FR-SANOFI-AVENTIS-2011SA005128

PATIENT
  Sex: Male
  Weight: 66 kg

DRUGS (6)
  1. OMACOR [Concomitant]
  2. PLAVIX [Suspect]
     Indication: MYOCARDIAL INFARCTION
     Route: 048
     Dates: start: 20050101, end: 20101229
  3. NEBIVOLOL HCL [Suspect]
     Dates: start: 20050101, end: 20101229
  4. PLAVIX [Suspect]
     Indication: STENT PLACEMENT
     Route: 048
     Dates: start: 20050101, end: 20101229
  5. PRAVASTATIN SODIUM [Concomitant]
     Dates: start: 20100701, end: 20101201
  6. EZETIMIBE [Concomitant]
     Dates: start: 20101201

REACTIONS (5)
  - GLOMERULONEPHRITIS MEMBRANOUS [None]
  - RASH [None]
  - NEPHROTIC SYNDROME [None]
  - ARTHRALGIA [None]
  - LUPUS-LIKE SYNDROME [None]
